FAERS Safety Report 22061350 (Version 1)
Quarter: 2023Q1

REPORT INFORMATION
  Report Type: Spontaneous
  Country: IN (occurrence: IN)
  Receive Date: 20230304
  Receipt Date: 20230304
  Transmission Date: 20230418
  Serious: Yes (Other)
  Sender: FDA-Public Use
  Company Number: IN-JNJFOC-20220914940

PATIENT

DRUGS (1)
  1. IMBRUVICA [Suspect]
     Active Substance: IBRUTINIB
     Indication: Chronic lymphocytic leukaemia
     Route: 048

REACTIONS (17)
  - Infection [Fatal]
  - Arrhythmia [Unknown]
  - Encephalitis [Unknown]
  - Arthralgia [Unknown]
  - Autoimmune haemolytic anaemia [Unknown]
  - Disseminated tuberculosis [Unknown]
  - Varicella [Unknown]
  - Pneumocystis jirovecii pneumonia [Unknown]
  - Mucormycosis [Unknown]
  - Haemorrhage [Unknown]
  - Hepatitis B reactivation [Unknown]
  - Rash [Unknown]
  - Aspergillus infection [Unknown]
  - Diarrhoea [Unknown]
  - Fatigue [Unknown]
  - Lymphocytosis [Unknown]
  - Cytopenia [Unknown]
